FAERS Safety Report 9788331 (Version 1)
Quarter: 2013Q4

REPORT INFORMATION
  Report Type: Spontaneous
  Country: US (occurrence: US)
  Receive Date: 20131230
  Receipt Date: 20131230
  Transmission Date: 20140711
  Serious: Yes (Hospitalization)
  Sender: FDA-Public Use
  Company Number: US-GILEAD-2013-0090763

PATIENT
  Age: 56 Year
  Sex: Female

DRUGS (5)
  1. LETAIRIS [Suspect]
     Indication: PRODUCT USED FOR UNKNOWN INDICATION
     Dosage: 10 MG, QD
     Route: 048
     Dates: start: 20080313
  2. DILAUDID [Concomitant]
  3. RESTORIL                           /00054301/ [Concomitant]
  4. PLAVIX [Concomitant]
  5. SEROQUEL [Concomitant]

REACTIONS (1)
  - Dyspnoea [Recovered/Resolved]
